FAERS Safety Report 14914414 (Version 1)
Quarter: 2018Q2

REPORT INFORMATION
  Report Type: Spontaneous
  Country: US (occurrence: US)
  Receive Date: 20180501
  Receipt Date: 20180501
  Transmission Date: 20180711
  Serious: Yes (Other)
  Sender: FDA-Public Use
  Company Number: None

PATIENT
  Age: 38 Year
  Sex: Male

DRUGS (4)
  1. LANSOPRAZOLE. [Concomitant]
     Active Substance: LANSOPRAZOLE
     Dates: start: 20100630
  2. OTEZLA [Concomitant]
     Active Substance: APREMILAST
     Dates: start: 20171124
  3. HUMIRA [Suspect]
     Active Substance: ADALIMUMAB
     Indication: PSORIATIC ARTHROPATHY
     Route: 058
     Dates: start: 20180122, end: 20180228
  4. TRAMADOL. [Concomitant]
     Active Substance: TRAMADOL
     Dates: start: 20171218

REACTIONS (3)
  - Pruritus [None]
  - Swelling [None]
  - Erythema [None]

NARRATIVE: CASE EVENT DATE: 20180427
